FAERS Safety Report 5345911-8 (Version None)
Quarter: 2007Q2

REPORT INFORMATION
  Report Type: 
  Country: None (occurrence: None)
  Receive Date: 20070605
  Receipt Date: 20070531
  Transmission Date: 20071010
  Serious: Yes (Other)
  Sender: FDA-Public Use
  Company Number: A0653684A

PATIENT
  Age: 77 Year
  Sex: Male

DRUGS (11)
  1. LAMICTAL [Suspect]
     Indication: DEPRESSION
     Dosage: 100MG PER DAY
     Route: 048
     Dates: start: 20070404, end: 20070526
  2. ZETIA [Concomitant]
  3. CELEXA [Concomitant]
  4. NORVASC [Concomitant]
  5. METOPROLOL SUCCINATE [Concomitant]
  6. ASPIRIN [Concomitant]
  7. PLAVIX [Concomitant]
  8. ZESTRIL [Concomitant]
  9. FISH OIL [Concomitant]
  10. LIPITOR [Concomitant]
  11. ARICEPT [Concomitant]

REACTIONS (3)
  - DRUG INEFFECTIVE [None]
  - MOUTH ULCERATION [None]
  - TONGUE PARALYSIS [None]
